FAERS Safety Report 7643017-6 (Version None)
Quarter: 2011Q3

REPORT INFORMATION
  Report Type: 
  Country: None (occurrence: None)
  Receive Date: 20110728
  Receipt Date: 20110722
  Transmission Date: 20111222
  Serious: Yes (Hospitalization, Disabling, Other)
  Sender: FDA-Public Use
  Company Number: US-MERCK-0911USA04325

PATIENT
  Age: 61 Year
  Sex: Male
  Weight: 85 kg

DRUGS (8)
  1. CELEBREX [Concomitant]
     Route: 065
  2. ATENOLOL [Concomitant]
     Indication: HYPERTENSION
     Route: 065
     Dates: start: 20020101
  3. SYNTHROID [Concomitant]
     Route: 065
  4. FOSAMAX [Suspect]
     Route: 065
     Dates: start: 20031223, end: 20100320
  5. PLAVIX [Concomitant]
     Route: 065
  6. ACTONEL [Suspect]
     Route: 065
     Dates: start: 20021202, end: 20060111
  7. FOSAMAX [Suspect]
     Indication: OSTEOPOROSIS
     Route: 048
     Dates: start: 20020101, end: 20050101
  8. FOSAMAX [Suspect]
     Route: 048
     Dates: start: 20060111, end: 20100401

REACTIONS (39)
  - OSTEONECROSIS OF JAW [None]
  - RHEUMATOID ARTHRITIS [None]
  - HYPERLIPIDAEMIA [None]
  - ADENOTONSILLECTOMY [None]
  - CAROTID ARTERY STENOSIS [None]
  - DENTAL CARIES [None]
  - OCCULT BLOOD POSITIVE [None]
  - THYROXINE DECREASED [None]
  - THORACIC VERTEBRAL FRACTURE [None]
  - IMPAIRED HEALING [None]
  - NERVE INJURY [None]
  - DIVERTICULITIS [None]
  - OSTEOARTHRITIS [None]
  - EDENTULOUS [None]
  - SERRATIA INFECTION [None]
  - URINARY TRACT INFECTION [None]
  - NEURALGIA [None]
  - ABDOMINAL REBOUND TENDERNESS [None]
  - ABDOMINAL PAIN [None]
  - PERIODONTITIS [None]
  - DIVERTICULUM [None]
  - PERIODONTAL DISEASE [None]
  - BONE DISORDER [None]
  - BLADDER DISORDER [None]
  - ADVERSE EVENT [None]
  - ANGIOPATHY [None]
  - DIARRHOEA [None]
  - URINARY RETENTION [None]
  - TOOTH DISORDER [None]
  - NOCTURIA [None]
  - INTERVERTEBRAL DISC DEGENERATION [None]
  - CHRONIC OBSTRUCTIVE PULMONARY DISEASE [None]
  - ARTERIOSCLEROSIS [None]
  - APPENDICITIS [None]
  - ARTHROPATHY [None]
  - GINGIVAL ULCERATION [None]
  - ABDOMINAL PAIN LOWER [None]
  - SKELETAL INJURY [None]
  - ANKLE FRACTURE [None]
